FAERS Safety Report 21641789 (Version 1)
Quarter: 2022Q4

REPORT INFORMATION
  Report Type: Spontaneous
  Country: US (occurrence: US)
  Receive Date: 20221125
  Receipt Date: 20221125
  Transmission Date: 20230112
  Serious: No
  Sender: FDA-Public Use
  Company Number: US-UNITED THERAPEUTICS-UNT-2022-021334

PATIENT
  Sex: Female
  Weight: 54.875 kg

DRUGS (5)
  1. REMODULIN [Suspect]
     Active Substance: TREPROSTINIL
     Indication: Pulmonary arterial hypertension
     Dosage: UNK, CONTINUING
     Route: 058
     Dates: start: 20220719
  2. REMODULIN [Suspect]
     Active Substance: TREPROSTINIL
     Dosage: 0.103 ?G/KG (PRE-FILLED WITH 3ML PER CASSETTE, AT PUMP RATE OF 34 MCL/HOUR), CONTINUING
     Route: 058
     Dates: start: 2022
  3. REMODULIN [Suspect]
     Active Substance: TREPROSTINIL
     Dosage: 0.061 ?G/KG, CONTINUING
     Route: 058
     Dates: start: 2022
  4. TADALAFIL [Concomitant]
     Active Substance: TADALAFIL
     Indication: Product used for unknown indication
     Dosage: UNK
     Route: 065
  5. LETAIRIS [Concomitant]
     Active Substance: AMBRISENTAN
     Indication: Product used for unknown indication
     Dosage: UNK
     Route: 065

REACTIONS (5)
  - Nausea [Recovering/Resolving]
  - Vomiting [Recovering/Resolving]
  - Headache [Recovering/Resolving]
  - Device dislocation [Recovered/Resolved]
  - Device failure [Recovered/Resolved]

NARRATIVE: CASE EVENT DATE: 20220101
